FAERS Safety Report 6252024-X (Version None)
Quarter: 2009Q2

REPORT INFORMATION
  Report Type: 
  Country: None (occurrence: None)
  Receive Date: 20090630
  Receipt Date: 20050318
  Transmission Date: 20091009
  Serious: Yes (Death, Hospitalization)
  Sender: FDA-Public Use
  Company Number: US-ROCHE-638596

PATIENT
  Sex: Male

DRUGS (35)
  1. ENFUVIRTIDE [Suspect]
     Indication: HIV INFECTION
     Route: 065
     Dates: start: 20050203, end: 20050318
  2. EPIVIR [Concomitant]
     Dates: start: 20031119, end: 20040101
  3. KALETRA [Concomitant]
     Dosage: DOSE: 4 TABLETS
     Dates: start: 20031119, end: 20040101
  4. SUSTIVA [Concomitant]
     Dosage: FREQUENCY: QD (EVERY DAY)
     Dates: start: 20031119, end: 20040101
  5. VIREAD [Concomitant]
     Dosage: FREQUENCY: QD (EVERY DAY)
     Dates: start: 20031119, end: 20040101
  6. NORVIR [Concomitant]
     Dosage: FREQUENCY: QD (EVERY DAY)
     Dates: start: 20040915, end: 20050101
  7. REYATAZ [Concomitant]
     Dosage: FREQUENCY: QD (EVERY DAY)
     Dates: start: 20040915, end: 20050101
  8. REYATAZ [Concomitant]
     Dosage: FREQUENCY: QD (EVERY DAY)
     Dates: start: 20050203, end: 20050301
  9. SUSTIVA [Concomitant]
     Dosage: FREQUENCY: QD (EVERY DAY)
     Dates: start: 20040915, end: 20050101
  10. SUSTIVA [Concomitant]
     Dosage: FREQUENCY: QD (EVERY DAY)
     Dates: start: 20050203, end: 20050207
  11. TRUVADA [Concomitant]
     Dosage: DOSE: 1 TABLET, FREQUENCY: QD (EVERY DAY)
     Dates: start: 20040915, end: 20050101
  12. TRUVADA [Concomitant]
     Dosage: DOSE: 1 TABLET, FREQUENCY: QD (EVERY DAY)
     Dates: start: 20050203, end: 20050301
  13. VIDEX EC [Concomitant]
     Dosage: FREQUENCY: QD (EVERY DAY)
     Dates: start: 20040915, end: 20050101
  14. VIDEX EC [Concomitant]
     Dates: start: 20050203, end: 20050301
  15. NORVIR [Concomitant]
     Dosage: FREQUENCY: QD (EVERY DAY)
     Dates: start: 20050203, end: 20050301
  16. BACTRIM DS [Concomitant]
     Dosage: FREQUENCY: QD (EVERY DAY)
     Dates: start: 20031119, end: 20040104
  17. BACTRIM DS [Concomitant]
     Dosage: DOSE: 1 TABLET, FREQUENCY: QD (EVERY DAY)
     Dates: start: 20040621, end: 20050101
  18. ZITHROMAX [Concomitant]
     Dates: start: 20031119, end: 20040104
  19. ZITHROMAX [Concomitant]
     Dosage: FREQUENCY: QD (EVERY DAY)
     Dates: start: 20040621, end: 20040621
  20. ZITHROMAX [Concomitant]
     Dosage: FREQUENCY: QD (EVERY DAY)
     Dates: start: 20040622, end: 20040626
  21. ZITHROMAX [Concomitant]
     Dosage: FREQUENCY: QD (EVERY DAY)
     Dates: start: 20040707, end: 20040801
  22. ZITHROMAX [Concomitant]
     Dosage: FREQUENCY: QD (EVERY DAY)
     Dates: start: 20040913, end: 20050101
  23. ZITHROMAX [Concomitant]
     Dosage: FREQUENCY: QD (EVERY DAY)
     Dates: start: 20050117, end: 20050117
  24. ZITHROMAX [Concomitant]
     Dosage: FREQUENCY: QD (EVERY DAY)
     Dates: start: 20050118, end: 20050127
  25. BACTRIM [Concomitant]
     Dates: start: 20040101, end: 20040101
  26. TEQUIN [Concomitant]
     Dates: start: 20040101, end: 20040101
  27. FLUCONAZOLE [Concomitant]
     Dosage: FREQUENCY: QD (EVERY DAY)
     Dates: start: 20040621, end: 20040701
  28. FLUCONAZOLE [Concomitant]
     Dosage: FREQUENCY: EVERY DAY (QD)
     Dates: start: 20040707, end: 20040717
  29. GATIFLOXACIN [Concomitant]
     Dosage: FREQUENCY: QD (EVERY DAY)
     Dates: start: 20040930, end: 20041009
  30. GATIFLOXACIN [Concomitant]
     Dosage: FREQUENCY: QD (EVERY DAY)
     Dates: start: 20041227, end: 20050110
  31. GATIFLOXACIN [Concomitant]
     Dosage: ROUTE: INTRAVENOUS
     Dates: start: 20041201, end: 20041201
  32. GATIFLOXACIN [Concomitant]
     Dosage: FREQUENCY: QD (EVERY DAY)
     Dates: start: 20050117, end: 20050201
  33. GATIFLOXACIN [Concomitant]
     Dosage: FREQUENCY: QD (EVERY DAY)
     Dates: start: 20050301, end: 20050401
  34. DIFLUCAN [Concomitant]
     Dosage: FREQUENCY: ONCE
     Dates: start: 20050207, end: 20050207
  35. DIFLUCAN [Concomitant]
     Dosage: FREQUENCY: QD (EVERY DAY)
     Dates: start: 20050208, end: 20050221

REACTIONS (7)
  - ANAEMIA [None]
  - CACHEXIA [None]
  - DECUBITUS ULCER [None]
  - DIARRHOEA [None]
  - END STAGE AIDS [None]
  - HIV INFECTION [None]
  - NEUROPATHY PERIPHERAL [None]
